FAERS Safety Report 4722977-7 (Version None)
Quarter: 2005Q3

REPORT INFORMATION
  Report Type: 
  Country: None (occurrence: None)
  Receive Date: 20050719
  Receipt Date: 20041001
  Transmission Date: 20060218
  Serious: Yes (Hospitalization, Other)
  Sender: FDA-Public Use
  Company Number: 2003147741US

PATIENT
  Age: 49 Year
  Sex: Female

DRUGS (2)
  1. CELEBREX [Suspect]
     Indication: PAIN
     Dosage: 100 MG, QD, ORAL; SEE IMAGE
     Route: 048
     Dates: start: 19990405, end: 19990409
  2. CELEBREX [Suspect]
     Indication: PAIN
     Dosage: 100 MG, QD, ORAL; SEE IMAGE
     Route: 048
     Dates: start: 19990410

REACTIONS (1)
  - GASTROENTERITIS [None]
